FAERS Safety Report 9921468 (Version 1)
Quarter: 2014Q1

REPORT INFORMATION
  Report Type: Spontaneous
  Country: US (occurrence: None)
  Receive Date: 20140221
  Receipt Date: 20140221
  Transmission Date: 20141002
  Serious: No
  Sender: FDA-Public Use
  Company Number: None

PATIENT
  Age: 4 None
  Sex: Female

DRUGS (2)
  1. CYCLOSPORINE [Suspect]
     Indication: RENAL TRANSPLANT
     Route: 048
  2. MYCOPHENOLATE [Suspect]
     Indication: RENAL TRANSPLANT
     Route: 048

REACTIONS (1)
  - Tremor [None]
